FAERS Safety Report 4740693-2 (Version None)
Quarter: 2005Q3

REPORT INFORMATION
  Report Type: 
  Country: None (occurrence: None)
  Receive Date: 20050810
  Receipt Date: 20050804
  Transmission Date: 20060218
  Serious: Yes (Hospitalization)
  Sender: FDA-Public Use
  Company Number: GBPFL-E-20050005

PATIENT
  Age: 66 Year
  Sex: Male

DRUGS (8)
  1. NAVELBINE [Suspect]
     Indication: NON-SMALL CELL LUNG CANCER
     Dosage: 25MGM2 CYCLIC
     Route: 042
     Dates: start: 20050329
  2. CISPLATIN [Suspect]
     Indication: NON-SMALL CELL LUNG CANCER
     Dosage: 80MGM2 UNKNOWN
     Route: 065
     Dates: start: 20050329
  3. MORPHINE [Concomitant]
     Indication: PAIN
  4. CO-DANTHRAMER [Concomitant]
     Indication: CONSTIPATION
  5. LANSOPRAZOLE [Concomitant]
     Indication: DYSPEPSIA
  6. GLICLAZIDE [Concomitant]
     Indication: DIABETES MELLITUS
  7. CIPROFLOXACIN HCL [Concomitant]
     Indication: PROPHYLACTIC CHEMOTHERAPY
  8. CLARITHROMYCIN [Concomitant]
     Indication: PROPHYLACTIC CHEMOTHERAPY

REACTIONS (5)
  - ANAEMIA [None]
  - LEUKOPENIA [None]
  - LOWER RESPIRATORY TRACT INFECTION [None]
  - NEUTROPENIA [None]
  - PYREXIA [None]
